FAERS Safety Report 6924171-8 (Version None)
Quarter: 2010Q3

REPORT INFORMATION
  Report Type: 
  Country: None (occurrence: None)
  Receive Date: 20100812
  Receipt Date: 20100812
  Transmission Date: 20110219
  Serious: Yes (Hospitalization, Other)
  Sender: FDA-Public Use
  Company Number: None

PATIENT
  Age: 69 Year
  Sex: Male
  Weight: 88.4514 kg

DRUGS (1)
  1. LOVENOX [Suspect]
     Indication: THROMBOSIS PROPHYLAXIS
     Dosage: 100 MG SYRUNGES 2 DOSES/DAY SQ
     Route: 058
     Dates: start: 20100718, end: 20100723

REACTIONS (7)
  - GAIT DISTURBANCE [None]
  - HAEMATOMA [None]
  - INCISION SITE PAIN [None]
  - JOINT RANGE OF MOTION DECREASED [None]
  - OEDEMA PERIPHERAL [None]
  - PAIN IN EXTREMITY [None]
  - VEIN DISORDER [None]
